FAERS Safety Report 24613668 (Version 1)
Quarter: 2024Q4

REPORT INFORMATION
  Report Type: Report from Study
  Country: JP (occurrence: JP)
  Receive Date: 20241113
  Receipt Date: 20241113
  Transmission Date: 20250114
  Serious: No
  Sender: ALEXION PHARMACEUTICALS
  Company Number: JP-ASTRAZENECA-240116384_032420_P_1

PATIENT
  Age: 83 Year
  Weight: 77 kg

DRUGS (5)
  1. TEZEPELUMAB [Suspect]
     Active Substance: TEZEPELUMAB
     Dosage: UNK
  2. CALCIUM SULFATE\HERBALS [Suspect]
     Active Substance: CALCIUM SULFATE\HERBALS
     Indication: Asthma
     Dosage: DOSE UNKNOWN
     Route: 065
  3. THEOPHYLLINE [Suspect]
     Active Substance: THEOPHYLLINE
     Indication: Asthma
     Dosage: DOSE UNKNOWN
     Route: 065
  4. CARBOCYSTEINE [Suspect]
     Active Substance: CARBOCYSTEINE
     Indication: Asthma
     Dosage: DOSE UNKNOWN
     Route: 065
  5. DUPILUMAB [Concomitant]
     Active Substance: DUPILUMAB
     Indication: Asthma
     Dosage: DOSE UNKNOWN
     Route: 065

REACTIONS (1)
  - No adverse event [Unknown]
